FAERS Safety Report 9408476 (Version 4)
Quarter: 2013Q4

REPORT INFORMATION
  Report Type: Report from Study
  Country: US (occurrence: US)
  Receive Date: 20130718
  Receipt Date: 20131127
  Transmission Date: 20140711
  Serious: Yes (Death, Life-Threatening, Hospitalization, Other)
  Sender: FDA-Public Use
  Company Number: US-ASTELLAS-2013EU006211

PATIENT
  Age: 56 Year
  Sex: Female
  Weight: 74.7 kg

DRUGS (51)
  1. BLINDED FIDAXOMICIN [Suspect]
     Indication: PROPHYLAXIS
     Dosage: 1 TABLET, QD
     Route: 048
     Dates: start: 20130607, end: 20130612
  2. BLINDED FIDAXOMICIN [Suspect]
     Dosage: 1 TABLET, QD
     Route: 048
     Dates: start: 20130614, end: 20130614
  3. BLINDED FIDAXOMICIN [Suspect]
     Dosage: 1 TABLET, QD
     Route: 048
     Dates: start: 20130617, end: 20130628
  4. TACROLIMUS SYSTEMIC [Suspect]
     Indication: PROPHYLAXIS AGAINST GRAFT VERSUS HOST DISEASE
     Dosage: 0.8 MG, Q12 HOURS
     Route: 042
     Dates: start: 20130610, end: 20130614
  5. TACROLIMUS SYSTEMIC [Suspect]
     Dosage: 1.3 MG, Q12H
     Route: 042
     Dates: start: 20130614, end: 20130701
  6. DIPHENHYDRAMINE [Concomitant]
     Indication: PRURITUS
     Dosage: 12.5 MG, Q6H
     Route: 042
     Dates: start: 20130607, end: 20130614
  7. DIPHENHYDRAMINE [Concomitant]
     Indication: NAUSEA
     Dosage: 50 MG, PRN
     Route: 042
     Dates: start: 20130613, end: 20130614
  8. DIPHENHYDRAMINE [Concomitant]
     Indication: VOMITING
     Dosage: 12.5 MG, SINGLE
     Route: 042
     Dates: start: 20130618, end: 20130618
  9. DIPHENHYDRAMINE [Concomitant]
     Indication: ANAPHYLAXIS PROPHYLAXIS
     Dosage: 25 MG, PRN
     Route: 042
     Dates: start: 20130627, end: 20130705
  10. DIPHENHYDRAMINE [Concomitant]
     Indication: PROPHYLAXIS
  11. NICODERM [Concomitant]
     Indication: SMOKING CESSATION THERAPY
     Dosage: 14 MG, QD
     Route: 062
     Dates: start: 20130607, end: 20130624
  12. NICODERM [Concomitant]
     Dosage: 7 MG, QD
     Route: 062
     Dates: start: 20130625, end: 20130704
  13. FILGRASTIM [Concomitant]
     Indication: COLONY STIMULATING FACTOR THERAPY
     Dosage: 300 ?G, QD
     Route: 058
     Dates: start: 20130619, end: 20130624
  14. FLUCONAZOLE [Concomitant]
     Indication: PROPHYLAXIS
     Dosage: 100 MG, QD
     Route: 042
     Dates: start: 20130613, end: 20130624
  15. FLUCONAZOLE [Concomitant]
     Indication: PYREXIA
     Dosage: 100 MG, QD
     Route: 042
     Dates: start: 20130625, end: 20130701
  16. ANUSOL-HC                          /00028604/ [Concomitant]
     Indication: PRURITUS
     Dosage: 1 APPLICATION, BID
     Route: 061
     Dates: start: 20130619, end: 20130705
  17. MAGNESIUM SULFATE [Concomitant]
     Indication: ELECTROLYTE SUBSTITUTION THERAPY
     Dosage: 2 G, SINGLE
     Route: 042
     Dates: start: 20130617, end: 20130617
  18. MAGNESIUM SULFATE [Concomitant]
     Indication: HYPOMAGNESAEMIA
     Dosage: 4 G, SINGLE
     Route: 042
     Dates: start: 20130620, end: 20130620
  19. MAGNESIUM SULFATE [Concomitant]
     Dosage: 4 G, SINGLE
     Route: 042
     Dates: start: 20130624, end: 20130624
  20. MAGNESIUM SULFATE [Concomitant]
     Dosage: 2 G, SINGLE
     Route: 042
     Dates: start: 20130625, end: 20130625
  21. MAGNESIUM SULFATE [Concomitant]
     Dosage: 4 G, SINGLE
     Route: 042
     Dates: start: 20130627, end: 20130627
  22. POTASSIUM CHLORIDE [Concomitant]
     Indication: ELECTROLYTE SUBSTITUTION THERAPY
     Dosage: 20 MEQ, Q1, 2 DOSES
     Route: 042
     Dates: start: 20130627, end: 20130627
  23. MYCOPHENOLATE MOFETIL [Concomitant]
     Indication: PROPHYLAXIS AGAINST GRAFT VERSUS HOST DISEASE
     Dosage: 500 MG, Q8H
     Route: 042
     Dates: start: 20130612, end: 20130705
  24. ACYCLOVIR                          /00587301/ [Concomitant]
     Indication: PROPHYLAXIS
     Dosage: 400 MG, Q12H
     Route: 048
     Dates: start: 20130614, end: 20130624
  25. ACYCLOVIR                          /00587301/ [Concomitant]
     Dosage: 400 MG, Q12H
     Route: 042
     Dates: start: 20130625, end: 20130625
  26. ACYCLOVIR                          /00587301/ [Concomitant]
     Dosage: 400 MG, BID
     Route: 048
     Dates: start: 20130625, end: 20130628
  27. ONDANSETRON [Concomitant]
     Indication: NAUSEA
     Dosage: 8 MG, Q8H
     Route: 042
     Dates: start: 20130610, end: 20130627
  28. ONDANSETRON [Concomitant]
     Indication: VOMITING
  29. PROTONIX [Concomitant]
     Indication: GASTROOESOPHAGEAL REFLUX DISEASE
     Dosage: 40 MG, QD
     Route: 042
     Dates: start: 20130613, end: 20130705
  30. AZTREONAM [Concomitant]
     Indication: BACTERAEMIA
     Dosage: 2 G, Q8H
     Route: 042
     Dates: start: 20130618, end: 20130624
  31. URSODIOL [Concomitant]
     Indication: THROMBOSIS PROPHYLAXIS
     Dosage: 300 MG, TID
     Route: 048
     Dates: start: 20130606, end: 20130701
  32. VANCOMYCIN [Concomitant]
     Indication: BACTERAEMIA
     Dosage: 1000 MG, SINGLE
     Route: 042
     Dates: start: 20130617, end: 20130617
  33. VANCOMYCIN [Concomitant]
     Dosage: 1000 MG, SINGLE
     Route: 042
     Dates: start: 20130618, end: 20130618
  34. VANCOMYCIN [Concomitant]
     Dosage: 1250 MG, Q12H
     Route: 042
     Dates: start: 20130618, end: 20130628
  35. MAALOX                             /00082501/ [Concomitant]
     Indication: GASTRIC DISORDER
     Dosage: 30 ML, PRN
     Route: 048
     Dates: start: 20130616, end: 20130705
  36. COLACE [Concomitant]
     Indication: CONSTIPATION
     Dosage: 100 MG, BID
     Route: 048
     Dates: start: 20130608, end: 20130702
  37. IMODIUM [Concomitant]
     Indication: DIARRHOEA
     Dosage: 2 MG, PRN
     Route: 048
     Dates: start: 20130612, end: 20130618
  38. IMODIUM [Concomitant]
     Dosage: 4 MG, PRN
     Route: 048
     Dates: start: 20130614, end: 20130623
  39. IMODIUM [Concomitant]
     Dosage: 2 MG, PRN
     Route: 048
     Dates: start: 20130623, end: 20130627
  40. IMODIUM [Concomitant]
     Dosage: 4-MG-Q6H
     Route: 048
     Dates: start: 20130623, end: 20130623
  41. LORAZEPAM [Concomitant]
     Indication: NAUSEA
     Dosage: 2 MG, PRN
     Route: 042
     Dates: start: 20130606, end: 20130705
  42. LORAZEPAM [Concomitant]
     Indication: VOMITING
  43. MORPHINE [Concomitant]
     Indication: PAIN
     Dosage: 15 MG, PRN
     Route: 048
     Dates: start: 20130606, end: 20130619
  44. MORPHINE [Concomitant]
     Dosage: 4 MG, PRN
     Route: 042
     Dates: start: 20130611, end: 20130627
  45. CEFEPIME [Concomitant]
     Indication: PYREXIA
     Dosage: 2 G, Q8H
     Route: 042
     Dates: start: 20130612, end: 20130618
  46. CEFEPIME [Concomitant]
     Dosage: 1 G, Q8H
     Route: 042
     Dates: start: 20130627, end: 20130701
  47. CLOBETASOL PROPIONATE [Concomitant]
     Indication: RASH
     Dosage: 1 APPLICATION, BID
     Route: 061
     Dates: start: 20130618, end: 20130705
  48. ACETAMINOPHEN [Concomitant]
     Indication: PYREXIA
     Dosage: 650 MG, SINGLE
     Route: 048
     Dates: start: 20130627, end: 20130627
  49. PHENERGAN                          /00033001/ [Concomitant]
     Indication: NAUSEA
     Dosage: 12.50 MG, Q6H
     Route: 042
     Dates: start: 20130607, end: 20130614
  50. PHENERGAN                          /00033001/ [Concomitant]
     Indication: VOMITING
     Dosage: 25 MG, PRN
     Route: 042
     Dates: start: 20130614, end: 20130705
  51. TYLENOL                            /00020001/ [Concomitant]
     Indication: PYREXIA
     Dosage: 650 MG, PRN
     Route: 048
     Dates: start: 20130611, end: 20130624

REACTIONS (2)
  - Multi-organ failure [Fatal]
  - Graft versus host disease in skin [Not Recovered/Not Resolved]
